FAERS Safety Report 4710650-0 (Version None)
Quarter: 2005Q3

REPORT INFORMATION
  Report Type: 
  Country: None (occurrence: None)
  Receive Date: 20050711
  Receipt Date: 20050704
  Transmission Date: 20060218
  Serious: Yes (Hospitalization)
  Sender: FDA-Public Use
  Company Number: PHNR2005AU01054

PATIENT
  Age: 52 Year
  Sex: Female

DRUGS (2)
  1. DESERIL [Suspect]
     Indication: MIGRAINE
     Route: 048
     Dates: start: 19991215, end: 20010215
  2. ZOMIG [Suspect]
     Indication: MIGRAINE
     Dosage: UNK, PRN
     Route: 048
     Dates: start: 19991215

REACTIONS (2)
  - RENAL FAILURE [None]
  - RETROPERITONEAL FIBROSIS [None]
